FAERS Safety Report 9515918 (Version 2)
Quarter: 2013Q3

REPORT INFORMATION
  Report Type: Report from Study
  Country: CA (occurrence: CA)
  Receive Date: 20130911
  Receipt Date: 20130911
  Transmission Date: 20140515
  Serious: Yes (Hospitalization)
  Sender: FDA-Public Use
  Company Number: CA-JNJFOC-20130900033

PATIENT
  Age: 54 Year
  Sex: Female
  Weight: 59.3 kg

DRUGS (3)
  1. REMICADE [Suspect]
     Indication: RHEUMATOID ARTHRITIS
     Dosage: WAS ON INFLIXIMAB SINCE 10 YEARS
     Route: 042
  2. REMICADE [Suspect]
     Indication: RHEUMATOID ARTHRITIS
     Route: 042
     Dates: start: 20130822, end: 2013
  3. METHOTREXATE [Concomitant]
     Dosage: STARTED ON WEEK END (CONSERVATIVELY TAKEN AS AUG-2013)
     Route: 065
     Dates: start: 201308

REACTIONS (6)
  - Pharyngeal oedema [Recovering/Resolving]
  - Chest discomfort [Recovering/Resolving]
  - Oropharyngeal pain [Recovering/Resolving]
  - Pyrexia [Unknown]
  - Chills [Unknown]
  - Urticaria [Unknown]
